FAERS Safety Report 7808623-4 (Version None)
Quarter: 2011Q4

REPORT INFORMATION
  Report Type: 
  Country: None (occurrence: None)
  Receive Date: 20111006
  Receipt Date: 20110922
  Transmission Date: 20120403
  Serious: Yes (Other)
  Sender: FDA-Public Use
  Company Number: PHHY2011JP85141

PATIENT
  Age: 72 Year
  Sex: Male

DRUGS (1)
  1. VISUDYNE [Suspect]
     Indication: AGE-RELATED MACULAR DEGENERATION
     Dates: start: 20110623, end: 20110623

REACTIONS (5)
  - MUSCULOSKELETAL PAIN [None]
  - JOINT DISLOCATION [None]
  - MUSCULOSKELETAL STIFFNESS [None]
  - PRODUCT LABEL ISSUE [None]
  - MYALGIA [None]
